FAERS Safety Report 22001062 (Version 1)
Quarter: 2023Q1

REPORT INFORMATION
  Report Type: Spontaneous
  Country: US (occurrence: US)
  Receive Date: 20230216
  Receipt Date: 20230216
  Transmission Date: 20230417
  Serious: No
  Sender: FDA-Public Use
  Company Number: US-FERRINGPH-2022FE02168

PATIENT
  Sex: Male

DRUGS (2)
  1. NOCDURNA [Suspect]
     Active Substance: DESMOPRESSIN ACETATE
     Indication: Nocturia
     Dosage: UNK
     Route: 048
  2. DDAVP [Suspect]
     Active Substance: DESMOPRESSIN ACETATE
     Indication: Product used for unknown indication
     Dosage: UNK FOR 5 NIGHTS
     Route: 048

REACTIONS (2)
  - Inability to afford medication [Unknown]
  - Product substitution issue [Unknown]
